FAERS Safety Report 7813966-4 (Version None)
Quarter: 2011Q4

REPORT INFORMATION
  Report Type: 
  Country: None (occurrence: None)
  Receive Date: 20111011
  Receipt Date: 20111003
  Transmission Date: 20120403
  Serious: Yes (Other)
  Sender: FDA-Public Use
  Company Number: 2011SP046810

PATIENT
  Sex: Female

DRUGS (5)
  1. SPIRONOLACTONE [Concomitant]
  2. DESOLETT (DESOGESTREL/ETHINYLESTRADIOL /00570801/) [Suspect]
     Indication: POLYCYSTIC OVARIES
     Dates: start: 19870101, end: 20060101
  3. DESOLETT (DESOGESTREL/ETHINYLESTRADIOL /00570801/) [Suspect]
     Indication: POLYCYSTIC OVARIES
     Dates: end: 20100101
  4. DESOLETT (DESOGESTREL/ETHINYLESTRADIOL /00570801/) [Suspect]
     Indication: POLYCYSTIC OVARIES
     Dates: start: 20110101
  5. CYPROTERONE ACETATE [Concomitant]

REACTIONS (4)
  - ALOPECIA [None]
  - ACNE [None]
  - SKIN DISORDER [None]
  - HYPERTENSION [None]
